FAERS Safety Report 5652810-0 (Version None)
Quarter: 2008Q1

REPORT INFORMATION
  Report Type: 
  Country: None (occurrence: None)
  Receive Date: 20080131
  Receipt Date: 20071003
  Transmission Date: 20080703
  Serious: No
  Sender: FDA-Public Use
  Company Number: US200710001149

PATIENT
  Age: 59 Year
  Sex: Female
  Weight: 129.3 kg

DRUGS (4)
  1. BYETTA [Suspect]
     Indication: WEIGHT DECREASED
     Dosage: 5 UG, 2/D, SUBCUTANEOUS ; 10 UG, 2/D, SUBCUTANEOUS
     Route: 058
     Dates: start: 20070801, end: 20070928
  2. BYETTA [Suspect]
     Indication: WEIGHT DECREASED
     Dosage: 5 UG, 2/D, SUBCUTANEOUS ; 10 UG, 2/D, SUBCUTANEOUS
     Route: 058
     Dates: start: 20070929
  3. METFORMIN HCL [Concomitant]
  4. HYZAAR [Concomitant]

REACTIONS (4)
  - ABNORMAL FAECES [None]
  - FREQUENT BOWEL MOVEMENTS [None]
  - NAUSEA [None]
  - WEIGHT DECREASED [None]
